FAERS Safety Report 16559824 (Version 2)
Quarter: 2019Q3

REPORT INFORMATION
  Report Type: Spontaneous
  Country: CA (occurrence: CA)
  Receive Date: 20190711
  Receipt Date: 20190724
  Transmission Date: 20191004
  Serious: Yes (Other)
  Sender: FDA-Public Use
  Company Number: CA-TEVA-2019-CA-1074040

PATIENT
  Age: 52 Year
  Sex: Male

DRUGS (3)
  1. PROGESTERONE. [Suspect]
     Active Substance: PROGESTERONE
     Indication: TRANSGENDER HORMONAL THERAPY
     Dosage: (DOSAGE: 100MG EVERY EVENING)
     Route: 065
  2. BUSERELIN ACETATE [Suspect]
     Active Substance: BUSERELIN ACETATE
     Indication: TRANSGENDER HORMONAL THERAPY
     Dosage: 1MG/ML (2 SPRAYS IN THE MORNING AND 1 SPRAY IN THE EVENING)
     Route: 065
  3. ESTRADIOL HEMIHYDRATE [Suspect]
     Active Substance: ESTRADIOL HEMIHYDRATE
     Indication: TRANSGENDER HORMONAL THERAPY
     Dosage: (DOSAGE: 2MG AT EVERY MORNING)
     Route: 065

REACTIONS (1)
  - Atrial fibrillation [Unknown]
